FAERS Safety Report 10607325 (Version 1)
Quarter: 2014Q4

REPORT INFORMATION
  Report Type: Spontaneous
  Country: US (occurrence: None)
  Receive Date: 20141124
  Receipt Date: 20141124
  Transmission Date: 20150529
  Serious: Yes (Hospitalization)
  Sender: FDA-Public Use
  Company Number: None

PATIENT
  Age: 58 Year
  Sex: Female
  Weight: 54.8 kg

DRUGS (14)
  1. XELODA [Suspect]
     Active Substance: CAPECITABINE
     Indication: BREAST CANCER
     Dosage: 500MG X 3  BID 7D ON 7D OFF  PO?CHRONIC
     Route: 048
  2. FUROSEMIDE. [Concomitant]
     Active Substance: FUROSEMIDE
  3. LEXAPRO [Concomitant]
     Active Substance: ESCITALOPRAM OXALATE
  4. VALTREX [Concomitant]
     Active Substance: VALACYCLOVIR HYDROCHLORIDE
  5. ANASTROZOLE. [Concomitant]
     Active Substance: ANASTROZOLE
  6. ASA [Concomitant]
     Active Substance: ASPIRIN
  7. HYDROXYZINE [Concomitant]
     Active Substance: HYDROXYZINE\HYDROXYZINE HYDROCHLORIDE
  8. MVI [Concomitant]
     Active Substance: VITAMINS
  9. ZOFRAN [Concomitant]
     Active Substance: ONDANSETRON HYDROCHLORIDE
  10. GABAPENTIN. [Concomitant]
     Active Substance: GABAPENTIN
  11. KCL [Concomitant]
     Active Substance: POTASSIUM CHLORIDE
  12. MMW [Concomitant]
  13. OXYCODONE [Concomitant]
     Active Substance: OXYCODONE
  14. OXYCONTIN [Concomitant]
     Active Substance: OXYCODONE HYDROCHLORIDE

REACTIONS (3)
  - Palmar-plantar erythrodysaesthesia syndrome [None]
  - Stomatitis [None]
  - Malnutrition [None]

NARRATIVE: CASE EVENT DATE: 20140408
